FAERS Safety Report 24237747 (Version 4)
Quarter: 2025Q3

REPORT INFORMATION
  Report Type: Other
  Country: US (occurrence: US)
  Receive Date: 20240822
  Receipt Date: 20250917
  Transmission Date: 20251021
  Serious: No
  Sender: TRAVERE THERAPEUTICS
  Company Number: US-TRAVERE-2024TVT00795

PATIENT
  Age: 45 Year
  Sex: Female

DRUGS (4)
  1. FILSPARI [Suspect]
     Active Substance: SPARSENTAN
     Indication: IgA nephropathy
     Route: 048
     Dates: start: 20240801
  2. FILSPARI [Suspect]
     Active Substance: SPARSENTAN
     Route: 048
  3. LISINOPRIL [Suspect]
     Active Substance: LISINOPRIL
     Indication: Product used for unknown indication
  4. JARDIANCE [Concomitant]
     Active Substance: EMPAGLIFLOZIN

REACTIONS (4)
  - Headache [Recovered/Resolved]
  - Weight increased [Recovered/Resolved]
  - Hypotension [Recovered/Resolved]
  - Off label use [Unknown]

NARRATIVE: CASE EVENT DATE: 20240801
